FAERS Safety Report 8576814-3 (Version None)
Quarter: 2012Q3

REPORT INFORMATION
  Report Type: 
  Country: None (occurrence: None)
  Receive Date: 20120807
  Receipt Date: 20120803
  Transmission Date: 20120928
  Serious: Yes (Hospitalization)
  Sender: FDA-Public Use
  Company Number: US-AMGEN-US247666

PATIENT
  Age: 70 Year
  Sex: Male

DRUGS (9)
  1. CINACALCET HYDROCHLORIDE [Suspect]
     Indication: HYPERPARATHYROIDISM SECONDARY
     Dosage: UNK UNK, QD
     Route: 048
     Dates: start: 20070603, end: 20071001
  2. LABETALOL HCL [Concomitant]
     Dosage: UNK UNK, UNK
     Route: 065
  3. DOXERCALCIFEROL [Concomitant]
     Dosage: UNK UNK, UNK
     Route: 065
  4. OMEPRAZOLE [Concomitant]
     Dosage: UNK UNK, UNK
     Route: 065
  5. RANITIDINE HYDROCHLORIDE [Concomitant]
     Dosage: UNK UNK, UNK
     Route: 065
  6. EPOGEN [Concomitant]
     Dosage: UNK UNK, UNK
     Route: 065
  7. ESOMEPRAZOLE MAGNESIUM [Concomitant]
     Dosage: UNK UNK, UNK
     Route: 065
  8. ATORVASTATIN CALCIUM [Concomitant]
     Dosage: UNK UNK, UNK
     Route: 065
  9. PHOSLO [Concomitant]
     Dosage: UNK UNK, UNK
     Route: 065

REACTIONS (1)
  - ABDOMINAL PAIN [None]
